FAERS Safety Report 9778887 (Version 1)
Quarter: 2013Q4

REPORT INFORMATION
  Report Type: Spontaneous
  Country: US (occurrence: US)
  Receive Date: 20131223
  Receipt Date: 20131223
  Transmission Date: 20140711
  Serious: Yes (Death, Other)
  Sender: FDA-Public Use
  Company Number: US-JHP PHARMACEUTICALS, LLC-JHP201300769

PATIENT
  Age: 11 Year
  Sex: Female

DRUGS (9)
  1. KETALAR [Suspect]
     Indication: ANAESTHESIA PROCEDURE
     Dosage: 2.4 MG/KG, UNK
  2. THYROXINE [Concomitant]
  3. HYDROCORTISONE [Concomitant]
     Dosage: 100 MG, UNK
     Route: 042
  4. HORMONES [Concomitant]
  5. CEFOTAXIME [Concomitant]
     Dosage: 2 G, UNK
     Route: 042
  6. VANCOMYCIN [Concomitant]
     Dosage: 500 MG, UNK
     Route: 042
  7. IBUPROFEN [Concomitant]
     Dosage: 600 MG, UNK
     Route: 048
  8. DOPAMINE [Concomitant]
     Dosage: 20 ?G/KG, MIN
     Route: 042
  9. ROCURONIUM [Concomitant]

REACTIONS (4)
  - Cardiac arrest [Fatal]
  - Off label use [Recovered/Resolved]
  - Hypotension [Recovered/Resolved]
  - Bradycardia [Recovered/Resolved]
